FAERS Safety Report 10085383 (Version 1)
Quarter: 2014Q2

REPORT INFORMATION
  Report Type: Report from Study
  Country: GB (occurrence: GB)
  Receive Date: 20140418
  Receipt Date: 20140418
  Transmission Date: 20141212
  Serious: Yes (Other)
  Sender: FDA-Public Use
  Company Number: GB-ABBVIE-14P-167-1226320-00

PATIENT
  Age: 62 Year
  Sex: Male
  Weight: 106 kg

DRUGS (2)
  1. HUMIRA [Suspect]
     Indication: PSORIASIS
     Route: 058
     Dates: start: 20130809
  2. CO-CODAMOL [Concomitant]
     Indication: PRODUCT USED FOR UNKNOWN INDICATION
     Route: 065
     Dates: start: 19900101

REACTIONS (3)
  - Skin plaque [Unknown]
  - Skin papilloma [Unknown]
  - Squamous cell carcinoma [Unknown]
